FAERS Safety Report 7142483-2 (Version None)
Quarter: 2010Q4

REPORT INFORMATION
  Report Type: 
  Country: None (occurrence: None)
  Receive Date: 20101207
  Receipt Date: 20101203
  Transmission Date: 20110411
  Serious: No
  Sender: FDA-Public Use
  Company Number: US-B.I. PHARMACEUTICALS,INC./RIDGEFIELD-2010-BP-13738BP

PATIENT
  Sex: Male

DRUGS (4)
  1. SPIRIVA [Suspect]
     Indication: ASTHMA
     Dosage: 18 MCG
     Route: 055
     Dates: start: 20100924
  2. ALBUTEROL [Concomitant]
     Indication: ASTHMA
     Route: 055
  3. XANAX [Concomitant]
     Indication: ANXIETY
     Route: 048
  4. XANAX [Concomitant]
     Indication: INSOMNIA

REACTIONS (4)
  - ASTHMA [None]
  - INCORRECT ROUTE OF DRUG ADMINISTRATION [None]
  - MIGRAINE [None]
  - MYALGIA [None]
